FAERS Safety Report 11535111 (Version 1)
Quarter: 2015Q3

REPORT INFORMATION
  Report Type: Spontaneous
  Country: US (occurrence: US)
  Receive Date: 20150903
  Receipt Date: 20150903
  Transmission Date: 20151125
  Serious: No
  Sender: FDA-Public Use
  Company Number: US-ELI_LILLY_AND_COMPANY-US201102006315

PATIENT
  Age: 76 Year
  Sex: Male

DRUGS (4)
  1. HUMALOG [Suspect]
     Active Substance: INSULIN LISPRO
     Dosage: 4 U, EACH MORNING
  2. HUMALOG [Suspect]
     Active Substance: INSULIN LISPRO
     Indication: TYPE 2 DIABETES MELLITUS
     Dosage: 1 U, UNK
     Dates: start: 201102
  3. HUMALOG [Suspect]
     Active Substance: INSULIN LISPRO
     Dosage: 6 U, OTHER
  4. HUMALOG [Suspect]
     Active Substance: INSULIN LISPRO
     Dosage: 6 U, EACH EVENING

REACTIONS (1)
  - Blood glucose increased [Not Recovered/Not Resolved]
